FAERS Safety Report 7673516 (Version 2)
Quarter: 2013Q3

REPORT INFORMATION
  Report Type: Spontaneous
  Country: CA (occurrence: CA)
  Receive Date: 20101118
  Receipt Date: 20130924
  Transmission Date: 20140515
  Serious: Yes (Other)
  Sender: FDA-Public Use
  Company Number: CA-RANBAXY-2010US-39313

PATIENT
  Sex: 0
  Weight: 2.7 kg

DRUGS (13)
  1. ABACAVIR +LAMIVUDINE+ZIDOVUDINE [Suspect]
     Indication: HIV INFECTION
     Dosage: 1 DF, BID
     Route: 064
  2. TENOFOVIR [Suspect]
     Indication: HIV INFECTION
     Dosage: 300 MG, QD
     Route: 064
  3. ZIDOVUDINE [Suspect]
     Indication: HIV INFECTION
     Dosage: UNK
     Route: 064
  4. DARUNAVIR [Suspect]
     Indication: HIV INFECTION
     Dosage: 600 MG, BID
     Route: 064
  5. ETRAVIRINE [Suspect]
     Indication: HIV INFECTION
     Dosage: 200 MG, BID
     Route: 064
  6. RALTEGRAVIR [Suspect]
     Indication: HIV INFECTION
     Dosage: 400 MG, BID
     Route: 064
  7. RITONAVIR [Suspect]
     Indication: HIV INFECTION
     Dosage: 100 MG, BID
     Route: 064
  8. ACYCLOVIR [Concomitant]
     Indication: PRODUCT USED FOR UNKNOWN INDICATION
     Dosage: UNK
     Route: 064
  9. AZITHROMYCIN [Concomitant]
     Indication: PRODUCT USED FOR UNKNOWN INDICATION
     Dosage: UNK
     Route: 065
  10. FOLIC ACID [Concomitant]
     Indication: PRODUCT USED FOR UNKNOWN INDICATION
     Dosage: UNK
     Route: 065
  11. IRON [Concomitant]
     Indication: PRODUCT USED FOR UNKNOWN INDICATION
     Dosage: UNK
     Route: 065
  12. MAGNESIUM GLUCOHEPTONATE [Concomitant]
     Indication: PRODUCT USED FOR UNKNOWN INDICATION
     Dosage: UNK
     Route: 065
  13. SULFAMETHOXAZOLE/TRIMETHOPRIM [Concomitant]
     Indication: PRODUCT USED FOR UNKNOWN INDICATION
     Dosage: UNK
     Route: 064

REACTIONS (3)
  - Foetal exposure during pregnancy [Unknown]
  - Anaemia [Recovered/Resolved]
  - Low birth weight baby [Unknown]
